FAERS Safety Report 16978629 (Version 2)
Quarter: 2020Q1

REPORT INFORMATION
  Report Type: Report from Study
  Country: CA (occurrence: CA)
  Receive Date: 20191031
  Receipt Date: 20200225
  Transmission Date: 20200409
  Serious: Yes (Other)
  Sender: FDA-Public Use
  Company Number: CA-JNJFOC-20191037973

PATIENT
  Sex: Female

DRUGS (1)
  1. STELARA [Suspect]
     Active Substance: USTEKINUMAB
     Indication: CROHN^S DISEASE
     Dosage: ON 11-FEB-2020, THE PATIENT RECEIVED 13TH 90 MILLIGRAMS STELARA INFUSION.
     Route: 058
     Dates: start: 20151106

REACTIONS (1)
  - Skin cancer [Unknown]
